FAERS Safety Report 11653846 (Version 6)
Quarter: 2016Q3

REPORT INFORMATION
  Report Type: Report from Study
  Country: US (occurrence: US)
  Receive Date: 20151022
  Receipt Date: 20160822
  Transmission Date: 20161109
  Serious: Yes (Death, Hospitalization)
  Sender: FDA-Public Use
  Company Number: US-ACTELION-A-NJ2015-124797

PATIENT
  Age: 54 Year
  Sex: Male

DRUGS (3)
  1. VELETRI [Suspect]
     Active Substance: EPOPROSTENOL
     Indication: PULMONARY ARTERIAL HYPERTENSION
     Dosage: 39.19 NG/KG, PER MIN
     Route: 042
     Dates: start: 20140804
  2. VELETRI [Suspect]
     Active Substance: EPOPROSTENOL
     Dosage: 26.84 NG/KG, PER MIN
     Route: 042
     Dates: start: 20140804
  3. OPSUMIT [Suspect]
     Active Substance: MACITENTAN
     Indication: PULMONARY ARTERIAL HYPERTENSION
     Dosage: 10 MG, QD
     Route: 048
     Dates: start: 20141218

REACTIONS (11)
  - Decreased appetite [Unknown]
  - Disease progression [Fatal]
  - Respiratory tract infection [Recovering/Resolving]
  - Pulmonary oedema [Recovering/Resolving]
  - Cardiac disorder [Unknown]
  - Clostridium difficile infection [Unknown]
  - Weight decreased [Unknown]
  - Ascites [Unknown]
  - Malnutrition [Unknown]
  - Fluid retention [Recovering/Resolving]
  - Palliative care [Fatal]
